FAERS Safety Report 10618693 (Version 2)
Quarter: 2014Q4

REPORT INFORMATION
  Report Type: Spontaneous
  Country: GB (occurrence: GB)
  Receive Date: 20141202
  Receipt Date: 20141215
  Transmission Date: 20150529
  Serious: Yes (Other)
  Sender: FDA-Public Use
  Company Number: PHFR2014GB008318

PATIENT
  Age: 42 Year
  Sex: Male

DRUGS (3)
  1. TEGRETOL [Suspect]
     Active Substance: CARBAMAZEPINE
     Indication: MULTIPLE SCLEROSIS
     Dosage: 200 MG, BID (ONE IN THE MORNING (AM) AND ONE IN THE EVENING (PM))
     Route: 048
     Dates: start: 2010, end: 20141121
  2. CARBAGEN [Suspect]
     Active Substance: CARBAMAZEPINE
     Indication: PRODUCT USED FOR UNKNOWN INDICATION
     Dosage: UNK
     Route: 065
     Dates: start: 20141122
  3. TEGRETOL [Suspect]
     Active Substance: CARBAMAZEPINE
     Indication: OFF LABEL USE

REACTIONS (4)
  - Muscle spasms [Not Recovered/Not Resolved]
  - Dizziness [Not Recovered/Not Resolved]
  - Seizure [Not Recovered/Not Resolved]
  - Malaise [Unknown]

NARRATIVE: CASE EVENT DATE: 20141126
